FAERS Safety Report 9391106 (Version 1)
Quarter: 2013Q3

REPORT INFORMATION
  Report Type: Spontaneous
  Country: US (occurrence: None)
  Receive Date: 20130705
  Receipt Date: 20130705
  Transmission Date: 20140515
  Serious: Yes (Hospitalization)
  Sender: FDA-Public Use
  Company Number: None

PATIENT
  Age: 13 Year
  Sex: Male
  Weight: 52.8 kg

DRUGS (2)
  1. CYTARABINE [Suspect]
     Dates: end: 20130615
  2. MITOXANTRONE HYDROCHLORIDE [Suspect]
     Dates: end: 20130617

REACTIONS (2)
  - Septic shock [None]
  - Streptococcus test positive [None]
